FAERS Safety Report 6596547-2 (Version None)
Quarter: 2010Q1

REPORT INFORMATION
  Report Type: 
  Country: None (occurrence: None)
  Receive Date: 20100222
  Receipt Date: 20100222
  Transmission Date: 20100710
  Serious: Yes (Other)
  Sender: FDA-Public Use
  Company Number: None

PATIENT
  Sex: Male
  Weight: 91.62 kg

DRUGS (4)
  1. EFFEXOR [Suspect]
     Indication: AUTONOMIC NERVOUS SYSTEM IMBALANCE
     Dosage: QD, PO
     Route: 048
     Dates: start: 20091011, end: 20091122
  2. SOY PROTEIN POWDER 20 GRAMS V. CASEIN PLACEBO [Suspect]
     Indication: AUTONOMIC NERVOUS SYSTEM IMBALANCE
     Dosage: QD, PO
     Route: 048
  3. LOVASTATIN [Concomitant]
  4. SUMATRIPTAN [Concomitant]

REACTIONS (2)
  - AORTIC ANEURYSM [None]
  - CHEST PAIN [None]
